FAERS Safety Report 25690792 (Version 1)
Quarter: 2025Q3

REPORT INFORMATION
  Report Type: Spontaneous
  Country: EU (occurrence: EU)
  Receive Date: 20250818
  Receipt Date: 20250818
  Transmission Date: 20251021
  Serious: Yes (Hospitalization, Other)
  Sender: ORGANON
  Company Number: EU-TEVA-VS-3154537

PATIENT
  Age: 39 Year
  Sex: Female

DRUGS (9)
  1. NEXPLANON [Suspect]
     Active Substance: ETONOGESTREL
     Indication: Angioedema
     Route: 059
     Dates: start: 201810, end: 20210201
  2. CHLORMADINONE ACETATE [Suspect]
     Active Substance: CHLORMADINONE ACETATE
     Indication: Product used for unknown indication
     Dates: start: 20140416, end: 201810
  3. CHLORMADINONE [Suspect]
     Active Substance: CHLORMADINONE
     Indication: Product used for unknown indication
     Dates: start: 2018
  4. CHLORMADINONE [Suspect]
     Active Substance: CHLORMADINONE
     Indication: Angioedema
  5. TRANEXAMIC ACID [Concomitant]
     Active Substance: TRANEXAMIC ACID
     Indication: Angioedema
  6. FIRAZYR [Concomitant]
     Active Substance: ICATIBANT ACETATE
     Indication: Angioedema
  7. BERINERT [Concomitant]
     Active Substance: HUMAN C1-ESTERASE INHIBITOR
     Indication: Angioedema
  8. EBASTINE [Concomitant]
     Active Substance: EBASTINE
     Indication: Angioedema
     Dosage: ONE TABLET IN THE MORNING AND IN THE EVENING
     Dates: start: 20180807
  9. SINGULAIR [Concomitant]
     Active Substance: MONTELUKAST SODIUM
     Dosage: ONE TABLET IN THE EVENING

REACTIONS (5)
  - Meningioma [Not Recovered/Not Resolved]
  - Language disorder [Not Recovered/Not Resolved]
  - Disturbance in attention [Not Recovered/Not Resolved]
  - Off label use [Unknown]
  - Product use in unapproved indication [Unknown]

NARRATIVE: CASE EVENT DATE: 20180101
